FAERS Safety Report 9912703 (Version 1)
Quarter: 2014Q1

REPORT INFORMATION
  Report Type: Spontaneous
  Country: US (occurrence: None)
  Receive Date: 20140212
  Receipt Date: 20140212
  Transmission Date: 20141002
  Serious: Yes (Hospitalization)
  Sender: FDA-Public Use
  Company Number: SYM-2014-17282

PATIENT
  Age: 52 Year
  Sex: Male

DRUGS (7)
  1. XENAZINE (TETRABENAZINE) (12.5 MILLIGRAM, TABLETS) (TETRABENAZINE) [Suspect]
     Indication: HUNTINGTON^S DISEASE
     Route: 048
  2. ATIVAN (LORAZEPAM) (LORAZEPAM) [Concomitant]
  3. EFFEXOR (VENLAFAXINE HYDROCHLORIDE)(VENLAFAXINE HYDROCHLORIDE) [Concomitant]
  4. SEROQUEL (QUETIAPINE FUMARATE) (QUETIAPINE FUMARATE) [Concomitant]
  5. DULCOLAX (BISACODYL) (BISACODYL) [Concomitant]
  6. VALPROIC ACID (VALPROIC ACID) (VALPROIC ACID) [Concomitant]
  7. ZOCOR (SIMVASTATIN) (SIMVASTATIN) [Concomitant]

REACTIONS (1)
  - Investigation [None]
